FAERS Safety Report 8016039-3 (Version None)
Quarter: 2011Q4

REPORT INFORMATION
  Report Type: 
  Country: None (occurrence: None)
  Receive Date: 20111230
  Receipt Date: 20111230
  Transmission Date: 20120403
  Serious: Yes (Hospitalization)
  Sender: FDA-Public Use
  Company Number: None

PATIENT
  Age: 37 Year
  Sex: Female
  Weight: 53.523 kg

DRUGS (3)
  1. GEODON [Concomitant]
  2. EFFEXOR [Concomitant]
  3. SAPHRIS [Suspect]
     Indication: BIPOLAR DISORDER
     Dosage: ORAL

REACTIONS (1)
  - BLOOD POTASSIUM DECREASED [None]
